FAERS Safety Report 7949527-6 (Version None)
Quarter: 2011Q4

REPORT INFORMATION
  Report Type: 
  Country: None (occurrence: None)
  Receive Date: 20111130
  Receipt Date: 20111123
  Transmission Date: 20120403
  Serious: Yes (Death)
  Sender: FDA-Public Use
  Company Number: US-ALEXION-A201101765

PATIENT
  Sex: Female

DRUGS (4)
  1. SOLIRIS [Suspect]
     Indication: TRANSPLANT REJECTION
     Dosage: 900-1200 MG, QW
     Route: 042
     Dates: start: 20110916, end: 20110923
  2. SOLIRIS [Suspect]
     Indication: LUNG TRANSPLANT
  3. CIPROFLOXACIN [Concomitant]
     Indication: ANTIBIOTIC PROPHYLAXIS
     Dosage: 400 MG, Q12HRS
     Route: 042
     Dates: start: 20110922
  4. MENINGOCOCCAL POLYSACCHARIDE [Concomitant]
     Indication: IMMUNISATION
     Dosage: UNK
     Dates: start: 20110912, end: 20110912

REACTIONS (2)
  - RESPIRATORY FAILURE [None]
  - TRANSPLANT REJECTION [None]
